FAERS Safety Report 6896841-1 (Version None)
Quarter: 2010Q3

REPORT INFORMATION
  Report Type: 
  Country: None (occurrence: None)
  Receive Date: 20100802
  Receipt Date: 20070216
  Transmission Date: 20110219
  Serious: No
  Sender: FDA-Public Use
  Company Number: US-PFIZER INC-2007013720

PATIENT
  Sex: Male
  Weight: 99.8 kg

DRUGS (5)
  1. LYRICA [Suspect]
     Indication: NEURALGIA
     Dates: start: 20070101
  2. LIPITOR [Concomitant]
  3. ALLOPURINOL [Concomitant]
  4. LISINOPRIL [Concomitant]
  5. CODEINE [Concomitant]

REACTIONS (2)
  - SOMNOLENCE [None]
  - VISION BLURRED [None]
